FAERS Safety Report 13278399 (Version 1)
Quarter: 2017Q1

REPORT INFORMATION
  Report Type: Other
  Country: GB (occurrence: GB)
  Receive Date: 20170228
  Receipt Date: 20170228
  Transmission Date: 20170428
  Serious: Yes (Other)
  Sender: FDA-Public Use
  Company Number: GB-PERRIGO-17GB001831

PATIENT

DRUGS (1)
  1. IBUPROFEN. [Suspect]
     Active Substance: IBUPROFEN
     Indication: HEADACHE
     Route: 048
     Dates: start: 20170205, end: 20170205

REACTIONS (3)
  - Tongue discomfort [Not Recovered/Not Resolved]
  - Throat irritation [Not Recovered/Not Resolved]
  - Oral pain [Not Recovered/Not Resolved]

NARRATIVE: CASE EVENT DATE: 20170205
